FAERS Safety Report 23363350 (Version 1)
Quarter: 2024Q1

REPORT INFORMATION
  Report Type: Spontaneous
  Country: US (occurrence: US)
  Receive Date: 20240103
  Receipt Date: 20240103
  Transmission Date: 20240409
  Serious: No
  Sender: FDA-Public Use
  Company Number: US-BAUSCH-BL-2023-019347

PATIENT
  Sex: Female

DRUGS (1)
  1. TIAZAC [Suspect]
     Active Substance: DILTIAZEM HYDROCHLORIDE
     Indication: Blood pressure increased
     Route: 065

REACTIONS (1)
  - Drug ineffective [Unknown]
